FAERS Safety Report 12124452 (Version 1)
Quarter: 2016Q1

REPORT INFORMATION
  Report Type: Spontaneous
  Country: US (occurrence: None)
  Receive Date: 20160226
  Receipt Date: 20160226
  Transmission Date: 20160526
  Serious: Yes (Other)
  Sender: FDA-Public Use
  Company Number: None

PATIENT
  Age: 34 Year
  Sex: Female
  Weight: 72.58 kg

DRUGS (7)
  1. LEVOFLOXACIN 500 MG AUROBINDO [Suspect]
     Active Substance: LEVOFLOXACIN
     Indication: MIDDLE EAR EFFUSION
     Dosage: 1 PILL ONCE DAILY TAKEN BY MOUTH
     Route: 048
     Dates: start: 20160218, end: 20160224
  2. VIT AMIN D3 [Concomitant]
  3. LEVOFLOXACIN 500 MG AUROBINDO [Suspect]
     Active Substance: LEVOFLOXACIN
     Indication: BRONCHITIS
     Dosage: 1 PILL ONCE DAILY TAKEN BY MOUTH
     Route: 048
     Dates: start: 20160218, end: 20160224
  4. LEVOTHYROXINE. [Concomitant]
     Active Substance: LEVOTHYROXINE
  5. KLONOPIN [Concomitant]
     Active Substance: CLONAZEPAM
  6. MOTRIN [Concomitant]
     Active Substance: IBUPROFEN
  7. CARVEDILOL. [Concomitant]
     Active Substance: CARVEDILOL

REACTIONS (6)
  - Muscle spasms [None]
  - Insomnia [None]
  - Metrorrhagia [None]
  - Anxiety [None]
  - Heart rate increased [None]
  - Panic attack [None]

NARRATIVE: CASE EVENT DATE: 20160217
